FAERS Safety Report 26061224 (Version 1)
Quarter: 2025Q4

REPORT INFORMATION
  Report Type: Report from Study
  Country: BR (occurrence: None)
  Receive Date: 20251118
  Receipt Date: 20251118
  Transmission Date: 20260117
  Serious: Yes (Other)
  Sender: UCB
  Company Number: BR-UCBSA-2025071779

PATIENT
  Age: 43 Year
  Weight: 69 kg

DRUGS (2)
  1. CERTOLIZUMAB PEGOL [Suspect]
     Active Substance: CERTOLIZUMAB PEGOL
     Indication: Ankylosing spondylitis
     Dosage: 200 MILLIGRAM, EV 2 WEEKS(QOW)
  2. LOSARTAN [Concomitant]
     Active Substance: LOSARTAN
     Indication: Hypertension
     Dosage: 50 MILLIGRAM

REACTIONS (4)
  - Ankylosing spondylitis [Not Recovered/Not Resolved]
  - Chest pain [Not Recovered/Not Resolved]
  - Inappropriate schedule of product administration [Unknown]
  - Product availability issue [Unknown]
